FAERS Safety Report 20526559 (Version 1)
Quarter: 2022Q1

REPORT INFORMATION
  Report Type: Spontaneous
  Country: US (occurrence: None)
  Receive Date: 20220226
  Receipt Date: 20220226
  Transmission Date: 20220423
  Serious: No
  Sender: FDA-Public Use
  Company Number: None

PATIENT
  Age: 26 Month
  Sex: Female
  Weight: 10.8 kg

DRUGS (1)
  1. POLYETHYLENE GLYCOL [Suspect]
     Active Substance: POLYETHYLENE GLYCOL

REACTIONS (4)
  - Abnormal behaviour [None]
  - Crying [None]
  - Stress urinary incontinence [None]
  - Sleep disorder [None]

NARRATIVE: CASE EVENT DATE: 20220226
